FAERS Safety Report 9464015 (Version 1)
Quarter: 2013Q3

REPORT INFORMATION
  Report Type: Spontaneous
  Country: JP (occurrence: JP)
  Receive Date: 20130819
  Receipt Date: 20130819
  Transmission Date: 20140515
  Serious: Yes (Other)
  Sender: FDA-Public Use
  Company Number: JP-PFIZER INC-2013234635

PATIENT
  Age: 59 Year
  Sex: Male

DRUGS (1)
  1. VIAGRA [Suspect]
     Dosage: 100 MG DAILY
     Route: 048

REACTIONS (4)
  - Suspected counterfeit product [Unknown]
  - Eye colour change [Unknown]
  - Visual impairment [Unknown]
  - Pallor [Unknown]
